FAERS Safety Report 9657594 (Version 2)
Quarter: 2013Q4

REPORT INFORMATION
  Report Type: Spontaneous
  Country: US (occurrence: US)
  Receive Date: 20131030
  Receipt Date: 20131030
  Transmission Date: 20140711
  Serious: Yes (Death, Other)
  Sender: FDA-Public Use
  Company Number: US-NAPPMUNDI-USA_2008_0033328

PATIENT
  Age: 22 Year
  Sex: Male

DRUGS (2)
  1. OXYCONTIN TABLETS [Suspect]
     Indication: SHOULDER OPERATION
     Dosage: UNK, SEE TEXT
     Dates: start: 199912, end: 20060520
  2. OXYCONTIN TABLETS [Suspect]
     Indication: PAIN MANAGEMENT

REACTIONS (11)
  - Accidental overdose [Fatal]
  - Drug dependence [Unknown]
  - Intentional drug misuse [Unknown]
  - Drug withdrawal syndrome [Unknown]
  - Paranoia [Unknown]
  - Delusional disorder, unspecified type [Unknown]
  - Obsessive-compulsive disorder [Unknown]
  - Anhedonia [Unknown]
  - Pain [Unknown]
  - Anxiety [Unknown]
  - Depression [Unknown]
